FAERS Safety Report 5171285-1 (Version None)
Quarter: 2006Q4

REPORT INFORMATION
  Report Type: 
  Country: None (occurrence: None)
  Receive Date: 20061213
  Receipt Date: 20051019
  Transmission Date: 20070319
  Serious: Yes (Other)
  Sender: FDA-Public Use
  Company Number: US-AMGEN-US154891

PATIENT
  Sex: Female

DRUGS (7)
  1. ENBREL [Suspect]
     Indication: RHEUMATOID ARTHRITIS
     Route: 058
     Dates: start: 20000823, end: 20051019
  2. RELAFEN [Concomitant]
  3. NEXIUM [Concomitant]
  4. METHOTREXATE [Concomitant]
     Route: 048
  5. FOLIC ACID [Concomitant]
  6. FOSAMAX [Concomitant]
  7. LORTAB [Concomitant]

REACTIONS (1)
  - CONVULSION [None]
